FAERS Safety Report 19731641 (Version 1)
Quarter: 2021Q3

REPORT INFORMATION
  Report Type: Spontaneous
  Country: US (occurrence: US)
  Receive Date: 20210820
  Receipt Date: 20210820
  Transmission Date: 20211014
  Serious: Yes (Other)
  Sender: FDA-Public Use
  Company Number: US-AMERICAN REGENT INC-2021002140

PATIENT
  Age: 1 Day
  Sex: Male

DRUGS (14)
  1. CLONIDINE HYDROCHLORIDE INJECTION, USP (0730?01) [Suspect]
     Active Substance: CLONIDINE HYDROCHLORIDE
     Dosage: 4 MCG/KG, EVERY 3 HOURS
     Route: 065
  2. NALOXONE [Concomitant]
     Active Substance: NALOXONE
     Indication: FOETAL EXPOSURE DURING DELIVERY
     Dosage: UNK
     Route: 065
  3. TRAZODONE [Concomitant]
     Active Substance: TRAZODONE HYDROCHLORIDE
     Indication: MAJOR DEPRESSION
     Dosage: UNK
     Route: 064
  4. CLONIDINE HYDROCHLORIDE INJECTION, USP (0730?01) [Suspect]
     Active Substance: CLONIDINE HYDROCHLORIDE
     Dosage: 3 MCG/KG, EVERY 3 HOURS
     Route: 065
  5. BUSPIRONE [Concomitant]
     Active Substance: BUSPIRONE HYDROCHLORIDE
     Indication: MAJOR DEPRESSION
     Dosage: UNK
     Route: 064
  6. CLONIDINE HYDROCHLORIDE INJECTION, USP (0730?01) [Suspect]
     Active Substance: CLONIDINE HYDROCHLORIDE
     Dosage: 2 MCG/KG, EVERY 3 HOURS
     Route: 065
  7. CLONIDINE HYDROCHLORIDE INJECTION, USP (0730?01) [Suspect]
     Active Substance: CLONIDINE HYDROCHLORIDE
     Dosage: 3 MCG/KG, EVERY 3 HOURS
     Route: 065
  8. CLONIDINE HYDROCHLORIDE INJECTION, USP (0730?01) [Suspect]
     Active Substance: CLONIDINE HYDROCHLORIDE
     Dosage: 2.5 MCG/KG, EVERY 3 HOURS
     Route: 065
  9. CLONIDINE HYDROCHLORIDE INJECTION, USP (0730?01) [Suspect]
     Active Substance: CLONIDINE HYDROCHLORIDE
     Dosage: 1.5 MCG/KG/DOSE (6 MCG EVERY 8 HOURS)
     Route: 065
  10. CLONIDINE HYDROCHLORIDE INJECTION, USP (0730?01) [Suspect]
     Active Substance: CLONIDINE HYDROCHLORIDE
     Dosage: DISCHARGED HOME ON 1.5 MCG/KG/DOSE EVERY 8 HOURS
     Route: 065
  11. CLONIDINE HYDROCHLORIDE INJECTION, USP (0730?01) [Suspect]
     Active Substance: CLONIDINE HYDROCHLORIDE
     Indication: SEROTONIN SYNDROME
     Dosage: 1 MCG/KG, EVERY 3 HOURS
     Route: 065
  12. SERTRALINE [Concomitant]
     Active Substance: SERTRALINE HYDROCHLORIDE
     Indication: MAJOR DEPRESSION
     Dosage: UNK
     Route: 064
  13. CLONIDINE HYDROCHLORIDE INJECTION, USP (0730?01) [Suspect]
     Active Substance: CLONIDINE HYDROCHLORIDE
     Indication: DRUG WITHDRAWAL SYNDROME NEONATAL
     Dosage: 2 MCG/KG, EVERY 3 HOURS
     Route: 065
  14. VENLAFAXINE [Concomitant]
     Active Substance: VENLAFAXINE HYDROCHLORIDE
     Indication: MAJOR DEPRESSION
     Dosage: UNK
     Route: 064

REACTIONS (3)
  - Product use issue [Unknown]
  - Product use in unapproved indication [Unknown]
  - Bradycardia [Recovered/Resolved]
